FAERS Safety Report 4809098-X (Version None)
Quarter: 2005Q4

REPORT INFORMATION
  Report Type: 
  Country: None (occurrence: None)
  Receive Date: 20051021
  Receipt Date: 20051021
  Transmission Date: 20060501
  Serious: Yes (Other)
  Sender: FDA-Public Use
  Company Number: None

PATIENT

DRUGS (1)
  1. AMD ENDOSOL [Suspect]
     Indication: CATARACT OPERATION
     Dosage: 1 - 500ML IRRIGATION
     Route: 047
     Dates: start: 20050913, end: 20051010

REACTIONS (3)
  - CATARACT OPERATION COMPLICATION [None]
  - EYE IRRITATION [None]
  - PHARMACEUTICAL PRODUCT COMPLAINT [None]
